FAERS Safety Report 4507130-4 (Version None)
Quarter: 2004Q4

REPORT INFORMATION
  Report Type: 
  Country: None (occurrence: None)
  Receive Date: 20041122
  Receipt Date: 20041112
  Transmission Date: 20050328
  Serious: Yes (Death)
  Sender: FDA-Public Use
  Company Number: US-MERCK-0411USA02347

PATIENT
  Age: 71 Year
  Sex: Male

DRUGS (3)
  1. VIOXX [Suspect]
     Indication: PAIN MANAGEMENT
     Route: 048
     Dates: start: 20030901, end: 20040201
  2. GLUCOPHAGE [Concomitant]
     Route: 065
  3. [THERAPY UNSPECIFIED] [Concomitant]
     Route: 065

REACTIONS (2)
  - MYOCARDIAL INFARCTION [None]
  - SUDDEN CARDIAC DEATH [None]
